FAERS Safety Report 21385548 (Version 1)
Quarter: 2022Q3

REPORT INFORMATION
  Report Type: Report from Study
  Country: US (occurrence: US)
  Receive Date: 20220928
  Receipt Date: 20220928
  Transmission Date: 20221027
  Serious: Yes (Other)
  Sender: FDA-Public Use
  Company Number: US-ABBVIE-4131673

PATIENT
  Sex: Female

DRUGS (1)
  1. RINVOQ [Suspect]
     Active Substance: UPADACITINIB
     Indication: Rheumatoid arthritis
     Route: 048
     Dates: start: 20220818

REACTIONS (10)
  - Bone operation [Unknown]
  - Gait disturbance [Unknown]
  - Pain [Unknown]
  - Musculoskeletal stiffness [Unknown]
  - Post procedural complication [Unknown]
  - Pain in extremity [Unknown]
  - Pain in extremity [Unknown]
  - Arthritis [Unknown]
  - Medical device implantation [Unknown]
  - Swelling [Unknown]

NARRATIVE: CASE EVENT DATE: 20220101
